FAERS Safety Report 7237391-2 (Version None)
Quarter: 2011Q1

REPORT INFORMATION
  Report Type: 
  Country: None (occurrence: None)
  Receive Date: 20110111
  Receipt Date: 20101228
  Transmission Date: 20110831
  Serious: Yes (Other)
  Sender: FDA-Public Use
  Company Number: JHP201000393

PATIENT

DRUGS (1)
  1. PITOCIN [Suspect]
     Indication: INDUCED LABOUR
     Dosage: HIGH DOSES, TRANSPLACENTAL
     Route: 064

REACTIONS (1)
  - INAPPROPRIATE ANTIDIURETIC HORMONE SECRETION [None]
